FAERS Safety Report 22072683 (Version 1)
Quarter: 2023Q1

REPORT INFORMATION
  Report Type: Spontaneous
  Country: CA (occurrence: CA)
  Receive Date: 20230308
  Receipt Date: 20230308
  Transmission Date: 20230417
  Serious: Yes (Hospitalization, Other)
  Sender: FDA-Public Use
  Company Number: CA-GLAXOSMITHKLINE-CA2023AMR032495

PATIENT

DRUGS (1)
  1. BENLYSTA [Suspect]
     Active Substance: BELIMUMAB
     Indication: Systemic lupus erythematosus
     Dosage: UNK

REACTIONS (15)
  - Pericardial disease [Unknown]
  - Pulmonary oedema [Unknown]
  - Injection site erythema [Unknown]
  - Injection site pain [Unknown]
  - Fatigue [Unknown]
  - Mobility decreased [Unknown]
  - Overweight [Unknown]
  - Tendon disorder [Unknown]
  - Tendonitis [Unknown]
  - Gait disturbance [Unknown]
  - Neck pain [Unknown]
  - Chest pain [Unknown]
  - Pain [Unknown]
  - Muscle discomfort [Unknown]
  - Product dose omission issue [Unknown]

NARRATIVE: CASE EVENT DATE: 20221201
